FAERS Safety Report 11448669 (Version 6)
Quarter: 2017Q1

REPORT INFORMATION
  Report Type: Report from Study
  Country: CO (occurrence: CO)
  Receive Date: 20150902
  Receipt Date: 20170228
  Transmission Date: 20170428
  Serious: Yes (Hospitalization, Other)
  Sender: FDA-Public Use
  Company Number: PHHY2015CO105963

PATIENT
  Age: 21 Year
  Sex: Male
  Weight: 59 kg

DRUGS (2)
  1. EXJADE [Suspect]
     Active Substance: DEFERASIROX
     Indication: MYELOID LEUKAEMIA
     Dosage: 10 MG/KG, QD (500 MG ONCE DAILY)
     Route: 048
     Dates: start: 20150211, end: 20150811
  2. ESOMEPRAZOLE [Concomitant]
     Active Substance: ESOMEPRAZOLE
     Indication: PRODUCT USED FOR UNKNOWN INDICATION
     Dosage: UNK
     Route: 065

REACTIONS (16)
  - Renal disorder [Unknown]
  - Cardiac tamponade [Unknown]
  - Urinary retention [Unknown]
  - Blood urine present [Unknown]
  - Tuberculosis [Unknown]
  - Memory impairment [Unknown]
  - Cough [Not Recovered/Not Resolved]
  - Urethral pain [Unknown]
  - Pneumonia [Unknown]
  - Posture abnormal [Unknown]
  - Diarrhoea [Unknown]
  - Insomnia [Unknown]
  - Swelling [Unknown]
  - Underweight [Unknown]
  - Herpes zoster [Unknown]
  - Cachexia [Unknown]

NARRATIVE: CASE EVENT DATE: 201507
